FAERS Safety Report 6342851-2 (Version None)
Quarter: 2009Q3

REPORT INFORMATION
  Report Type: 
  Country: None (occurrence: None)
  Receive Date: 20090908
  Receipt Date: 20090824
  Transmission Date: 20100115
  Serious: Yes (Hospitalization)
  Sender: FDA-Public Use
  Company Number: IT-ROCHE-652770

PATIENT
  Sex: Male

DRUGS (2)
  1. PEGASYS [Suspect]
     Indication: HEPATITIS C
     Dosage: FORM REPORTED: VIAL
     Route: 058
     Dates: start: 20090306, end: 20090724
  2. COPEGUS [Suspect]
     Indication: HEPATITIS C
     Dosage: ROUTE REPORTED: OS.  FREQUENCY REPORTED AS 1200 X DAY.
     Route: 048
     Dates: start: 20090306, end: 20090731

REACTIONS (3)
  - ASCITES [None]
  - ENTEROCOLITIS [None]
  - GASTROINTESTINAL HYPOMOTILITY [None]
